FAERS Safety Report 14414717 (Version 1)
Quarter: 2018Q1

REPORT INFORMATION
  Report Type: Spontaneous
  Country: US (occurrence: US)
  Receive Date: 20180120
  Receipt Date: 20180120
  Transmission Date: 20180509
  Serious: Yes (Other)
  Sender: FDA-Public Use
  Company Number: US-INGENUS PHARMACEUTICALS NJ, LLC-ING201801-000044

PATIENT
  Age: 44 Year
  Sex: Female

DRUGS (1)
  1. PROBENECID AND COLCHICINE [Suspect]
     Active Substance: COLCHICINE\PROBENECID
     Indication: PERICARDITIS

REACTIONS (2)
  - Toxicity to various agents [Recovered/Resolved]
  - Gastric ulcer [Recovered/Resolved]
